FAERS Safety Report 14196601 (Version 2)
Quarter: 2017Q4

REPORT INFORMATION
  Report Type: Spontaneous
  Country: US (occurrence: US)
  Receive Date: 20171116
  Receipt Date: 20171206
  Transmission Date: 20180321
  Serious: Yes (Hospitalization, Disabling, Other)
  Sender: FDA-Public Use
  Company Number: US-ENDO PHARMACEUTICALS INC-2017-005967

PATIENT
  Age: 64 Year
  Sex: Female
  Weight: 45.81 kg

DRUGS (3)
  1. LEVOTHYROXINE. [Concomitant]
     Active Substance: LEVOTHYROXINE
     Indication: HYPOTHYROIDISM
     Dosage: 100 ?G, DAILY
     Route: 065
     Dates: start: 1989
  2. TESTOPEL [Suspect]
     Active Substance: TESTOSTERONE
     Indication: BLOOD TESTOSTERONE DECREASED
     Dosage: 75 MG, ONE PELLET INSERTED
     Route: 058
     Dates: start: 20170920, end: 20171108
  3. CORTISOL                           /00028601/ [Concomitant]
     Active Substance: HYDROCORTISONE
     Indication: AUTOIMMUNE DISORDER
     Dosage: 15 MG, DAILY
     Route: 065
     Dates: start: 2016

REACTIONS (11)
  - Mood altered [Not Recovered/Not Resolved]
  - Off label use [Recovered/Resolved]
  - Surgery [Recovered/Resolved]
  - Vomiting [Recovered/Resolved]
  - Arthralgia [Not Recovered/Not Resolved]
  - Fatigue [Not Recovered/Not Resolved]
  - Bedridden [Unknown]
  - Oedema [Not Recovered/Not Resolved]
  - Peripheral swelling [Not Recovered/Not Resolved]
  - Wrong technique in product usage process [Recovered/Resolved]
  - Extremity contracture [Unknown]

NARRATIVE: CASE EVENT DATE: 2017
